FAERS Safety Report 17189582 (Version 1)
Quarter: 2019Q4

REPORT INFORMATION
  Report Type: Spontaneous
  Country: CA (occurrence: CA)
  Receive Date: 20191223
  Receipt Date: 20191223
  Transmission Date: 20200122
  Serious: Yes (Disabling)
  Sender: FDA-Public Use
  Company Number: CA-TEVA-2019-CA-1155339

PATIENT
  Age: 47 Year
  Sex: Female

DRUGS (3)
  1. TEVA-PREDNISOLONE [Suspect]
     Active Substance: PREDNISOLONE
     Indication: INFLAMMATION
     Dosage: SOLUTION OPHTHALMIC, 1 DROPS
     Route: 047
  2. ZYMAR [Concomitant]
     Active Substance: GATIFLOXACIN
     Dosage: SOLUTION OPHTHALMIC
  3. CYCLOGYL [Concomitant]
     Active Substance: CYCLOPENTOLATE HYDROCHLORIDE
     Dosage: DROPS OPHTHALMIC

REACTIONS (2)
  - Vision blurred [Recovered/Resolved]
  - Product quality issue [Recovered/Resolved]
